FAERS Safety Report 19064072 (Version 2)
Quarter: 2021Q2

REPORT INFORMATION
  Report Type: Spontaneous
  Country: PL (occurrence: PL)
  Receive Date: 20210326
  Receipt Date: 20210406
  Transmission Date: 20210717
  Serious: Yes (Life-Threatening, Other)
  Sender: FDA-Public Use
  Company Number: PL-BAYER-2021-112066

PATIENT
  Age: 42 Year
  Sex: Female
  Weight: 80 kg

DRUGS (1)
  1. GADOVIST [Suspect]
     Active Substance: GADOBUTROL
     Route: 042

REACTIONS (7)
  - Urticaria [Unknown]
  - Laryngeal oedema [Unknown]
  - Bronchospasm [Unknown]
  - Dyspnoea [Unknown]
  - Dysphonia [Unknown]
  - Anaphylactic reaction [None]
  - Dizziness [Unknown]
